FAERS Safety Report 23036498 (Version 2)
Quarter: 2023Q4

REPORT INFORMATION
  Report Type: Report from Study
  Country: NL (occurrence: NL)
  Receive Date: 20231006
  Receipt Date: 20231011
  Transmission Date: 20240109
  Serious: Yes (Death)
  Sender: FDA-Public Use
  Company Number: NL-Vifor (International) Inc.-VIT-2023-07207

PATIENT
  Age: 46 Year
  Sex: Male

DRUGS (2)
  1. AVACOPAN [Suspect]
     Active Substance: AVACOPAN
     Indication: Anti-neutrophil cytoplasmic antibody positive vasculitis
     Dosage: 30 MILLIGRAM
     Route: 065
     Dates: start: 20230922, end: 20230922
  2. PREDNISONE [Concomitant]
     Active Substance: PREDNISONE
     Indication: Anti-neutrophil cytoplasmic antibody positive vasculitis

REACTIONS (2)
  - Sepsis [Fatal]
  - General physical health deterioration [Unknown]

NARRATIVE: CASE EVENT DATE: 20230923
